FAERS Safety Report 14013944 (Version 3)
Quarter: 2018Q1

REPORT INFORMATION
  Report Type: Spontaneous
  Country: JP (occurrence: JP)
  Receive Date: 20170926
  Receipt Date: 20180313
  Transmission Date: 20180508
  Serious: Yes (Death, Life-Threatening, Hospitalization, Other)
  Sender: FDA-Public Use
  Company Number: JP-009507513-1708JPN002466J

PATIENT
  Age: 78 Year
  Sex: Female
  Weight: 60 kg

DRUGS (2)
  1. PICILLIBACTA [Concomitant]
     Active Substance: AMPICILLIN SODIUM\SULBACTAM SODIUM
     Indication: PNEUMONIA
     Dosage: 3 G, TID
     Route: 042
     Dates: start: 20170802, end: 20170809
  2. KEYTRUDA [Suspect]
     Active Substance: PEMBROLIZUMAB
     Indication: LUNG SQUAMOUS CELL CARCINOMA STAGE IV
     Dosage: 200 MG, Q3W
     Route: 041
     Dates: start: 20170801, end: 20170801

REACTIONS (6)
  - Atrial fibrillation [Not Recovered/Not Resolved]
  - Pulmonary embolism [Unknown]
  - Myocarditis [Unknown]
  - Cardiac failure congestive [Recovered/Resolved]
  - Pleural effusion [Not Recovered/Not Resolved]
  - Malignant neoplasm progression [Fatal]

NARRATIVE: CASE EVENT DATE: 2017
